FAERS Safety Report 19573615 (Version 4)
Quarter: 2023Q2

REPORT INFORMATION
  Report Type: Other
  Country: US (occurrence: None)
  Receive Date: 20210717
  Receipt Date: 20230615
  Transmission Date: 20230722
  Serious: Yes (Other)
  Sender: FDA-Public Use
  Company Number: US-ROCHE-2867621

PATIENT
  Age: 35 Year
  Sex: Female
  Weight: 92.62 kg

DRUGS (10)
  1. OCREVUS [Suspect]
     Active Substance: OCRELIZUMAB
     Indication: Relapsing multiple sclerosis
     Dosage: DATE OF TREATMENT: 08/MAY/2019, 22/MAY/2019, 12/NOV/2019, 14/MAY/2020, 17/NOV/2020, 18/MAY/2021
     Route: 042
  2. OCREVUS [Suspect]
     Active Substance: OCRELIZUMAB
     Dosage: INFUSE 300 MG DAY 1, 300MG DAY 14
     Route: 042
  3. ALBUTEROL SULFATE [Concomitant]
     Active Substance: ALBUTEROL SULFATE
     Dosage: 90 MCG/ACTUATION AEROSOL INHALER, 2 PUFFS EVERY 4 HOURS AS NEEDED
     Dates: start: 20210222
  4. AMOXICILLIN [Concomitant]
     Active Substance: AMOXICILLIN
     Dosage: TAKE 1 TABLET
     Route: 048
     Dates: start: 20200916
  5. CLAVULANATE POTASSIUM [Concomitant]
     Active Substance: CLAVULANATE POTASSIUM
     Dosage: TAKE 1 TABLET
     Route: 048
     Dates: start: 20200916
  6. DOXEPIN [Concomitant]
     Active Substance: DOXEPIN
     Dosage: TAKE 1-2 TABLETS AT NIGHT
     Route: 048
     Dates: start: 20210518
  7. PANTOPRAZOLE [Concomitant]
     Active Substance: PANTOPRAZOLE
     Dosage: TAKE 1 TABLET
     Route: 048
     Dates: start: 20210511
  8. PREDNISONE [Concomitant]
     Active Substance: PREDNISONE
     Route: 048
     Dates: start: 20210426
  9. TRIAMCINOLONE ACETONIDE [Concomitant]
     Active Substance: TRIAMCINOLONE ACETONIDE
     Dosage: APPLY TO AFFECTED AREA TWICE A DAY AS NEEDED
     Route: 061
     Dates: start: 20210518
  10. VENLAFAXINE HYDROCHLORIDE [Concomitant]
     Active Substance: VENLAFAXINE HYDROCHLORIDE
     Dosage: TAKE 1 CAPSULE BY MOUTH EVERY DAY
     Route: 048

REACTIONS (3)
  - Demyelination [Unknown]
  - COVID-19 [Unknown]
  - Hypoaesthesia [Unknown]

NARRATIVE: CASE EVENT DATE: 20210101
